FAERS Safety Report 4643092-7 (Version None)
Quarter: 2005Q2

REPORT INFORMATION
  Report Type: 
  Country: None (occurrence: None)
  Receive Date: 20050422
  Receipt Date: 20050217
  Transmission Date: 20051028
  Serious: Yes (Other)
  Sender: FDA-Public Use
  Company Number: 2004114137

PATIENT
  Sex: Female

DRUGS (2)
  1. NORVASC [Suspect]
     Indication: HYPERTENSION
     Dosage: 5 MG (5 MG, DAILY) ORAL
     Route: 048
     Dates: start: 20041204, end: 20041201
  2. DOXAZOSIN (DOXAZOSIN) [Suspect]
     Indication: ILL-DEFINED DISORDER
     Dates: end: 20041203

REACTIONS (3)
  - CARDIAC ARREST [None]
  - DYSPNOEA [None]
  - WHEEZING [None]
